FAERS Safety Report 8114458-8 (Version None)
Quarter: 2012Q1

REPORT INFORMATION
  Report Type: 
  Country: None (occurrence: None)
  Receive Date: 20120206
  Receipt Date: 20120125
  Transmission Date: 20120608
  Serious: No
  Sender: FDA-Public Use
  Company Number: US-BIOGENIDEC-2012BI003045

PATIENT
  Sex: Female

DRUGS (1)
  1. AVONEX [Suspect]
     Indication: MULTIPLE SCLEROSIS
     Route: 030

REACTIONS (6)
  - INFLUENZA LIKE ILLNESS [None]
  - CHILLS [None]
  - HYPOAESTHESIA [None]
  - NEURALGIA [None]
  - PYREXIA [None]
  - PERIORBITAL HAEMATOMA [None]
